FAERS Safety Report 10710562 (Version 1)
Quarter: 2015Q1

REPORT INFORMATION
  Report Type: Report from Study
  Country: CA (occurrence: CA)
  Receive Date: 20150114
  Receipt Date: 20150114
  Transmission Date: 20150721
  Serious: Yes (Death, Other)
  Sender: FDA-Public Use
  Company Number: CA-SA-2014SA130476

PATIENT

DRUGS (12)
  1. PENTOSTATIN. [Concomitant]
     Active Substance: PENTOSTATIN
  2. MYCOPHENOLATE MOFETIL. [Suspect]
     Active Substance: MYCOPHENOLATE MOFETIL
     Indication: PROPHYLAXIS AGAINST GRAFT VERSUS HOST DISEASE
     Route: 065
  3. METHYLPREDNISOLONE. [Suspect]
     Active Substance: METHYLPREDNISOLONE
     Route: 065
  4. SIROLIMUS. [Suspect]
     Active Substance: SIROLIMUS
     Route: 065
  5. CYCLOPHOSPHAMIDE. [Suspect]
     Active Substance: CYCLOPHOSPHAMIDE
     Route: 065
  6. METHOTREXATE [Suspect]
     Active Substance: METHOTREXATE
     Indication: PROPHYLAXIS AGAINST GRAFT VERSUS HOST DISEASE
     Route: 065
  7. INFLIXIMAB [Suspect]
     Active Substance: INFLIXIMAB
     Route: 065
  8. PENTAMIDINE [Concomitant]
     Active Substance: PENTAMIDINE
  9. ACICLOVIR [Concomitant]
     Active Substance: ACYCLOVIR
     Indication: ANTIVIRAL PROPHYLAXIS
     Dosage: 80 MG INTRAVENOUSLY OR 400 MG BY MOUTH TWICE DAILY FOR FIRST 28 DAYS
  10. ALEMTUZUMAB [Suspect]
     Active Substance: ALEMTUZUMAB
     Indication: PROPHYLAXIS AGAINST GRAFT VERSUS HOST DISEASE
     Route: 065
  11. CICLOSPORIN [Suspect]
     Active Substance: CYCLOSPORINE
     Indication: PROPHYLAXIS AGAINST GRAFT VERSUS HOST DISEASE
     Route: 065
  12. COTRIMOXAZOLE [Concomitant]
     Active Substance: SULFAMETHOXAZOLE\TRIMETHOPRIM
     Indication: PROPHYLAXIS

REACTIONS (15)
  - Enterococcal infection [Unknown]
  - Infection [Fatal]
  - Aspergillus infection [Unknown]
  - Klebsiella infection [Unknown]
  - Fungal infection [Unknown]
  - Nocardiosis [Unknown]
  - Staphylococcal infection [Unknown]
  - Citrobacter infection [Unknown]
  - Escherichia infection [Unknown]
  - Herpes zoster [Unknown]
  - Corynebacterium infection [Unknown]
  - Cytomegalovirus infection [Unknown]
  - Mycobacterium avium complex infection [Unknown]
  - BK virus infection [Unknown]
  - Cystitis [Unknown]
